FAERS Safety Report 7844322-0 (Version None)
Quarter: 2011Q4

REPORT INFORMATION
  Report Type: 
  Country: None (occurrence: None)
  Receive Date: 20111019
  Receipt Date: 20111005
  Transmission Date: 20120403
  Serious: Yes (Hospitalization)
  Sender: FDA-Public Use
  Company Number: 2011SP047251

PATIENT
  Age: 56 Year
  Sex: Female

DRUGS (18)
  1. HYDROCHLOROTHIAZIDE [Concomitant]
  2. HYDROCODONE BITARTRATE [Concomitant]
  3. NEXIUM [Concomitant]
  4. POTASSIUM CHLORIDE [Concomitant]
  5. XANAX [Concomitant]
  6. RIBAVIRIN [Suspect]
     Indication: PRODUCT USED FOR UNKNOWN INDICATION
     Dates: start: 20110705, end: 20110921
  7. IBUPROFEN [Concomitant]
  8. OXYCONTIN [Concomitant]
  9. ALENDRONATE SODIUM [Concomitant]
  10. CARISOPRODOL [Concomitant]
  11. ENALAPRIL [Concomitant]
  12. VICTRELIS [Suspect]
     Indication: HEPATITIS C
     Dosage: 200 MG;TID;PO
     Route: 048
     Dates: start: 20110101, end: 20110921
  13. PEG-INTRON [Suspect]
     Indication: PRODUCT USED FOR UNKNOWN INDICATION
     Dates: start: 20110705, end: 20110921
  14. OMEPRAZOLE [Concomitant]
  15. KLOR-CON [Concomitant]
  16. LIDODERM [Concomitant]
  17. METFORMIN HCL [Concomitant]
  18. OXYCODONE HCL [Concomitant]

REACTIONS (6)
  - LIP DRY [None]
  - DELIRIUM [None]
  - AMNESIA [None]
  - SKIN EXFOLIATION [None]
  - BURNING SENSATION [None]
  - WEIGHT DECREASED [None]
